FAERS Safety Report 12368401 (Version 2)
Quarter: 2016Q3

REPORT INFORMATION
  Report Type: Report from Study
  Country: CA (occurrence: CA)
  Receive Date: 20160513
  Receipt Date: 20160825
  Transmission Date: 20161109
  Serious: Yes (Other)
  Sender: FDA-Public Use
  Company Number: CA-009507513-1605CAN006203

PATIENT
  Sex: Female

DRUGS (2)
  1. TEMODAL [Suspect]
     Active Substance: TEMOZOLOMIDE
     Indication: ANAPLASTIC ASTROCYTOMA
     Dosage: 85 MG, QD
     Route: 048
  2. TEMODAL [Suspect]
     Active Substance: TEMOZOLOMIDE
     Dosage: 85 MG, QD; X 28 DAYS
     Route: 048
     Dates: start: 20160505, end: 20160602

REACTIONS (6)
  - Palliative care [Unknown]
  - Abasia [Unknown]
  - Seizure [Unknown]
  - Dementia [Unknown]
  - Cognitive disorder [Unknown]
  - Nausea [Unknown]

NARRATIVE: CASE EVENT DATE: 2016
